FAERS Safety Report 5757315-4 (Version None)
Quarter: 2008Q2

REPORT INFORMATION
  Report Type: 
  Country: None (occurrence: None)
  Receive Date: 20080603
  Receipt Date: 20080522
  Transmission Date: 20081010
  Serious: Yes (Death, Disabling)
  Sender: FDA-Public Use
  Company Number: CL-ROCHE-566347

PATIENT
  Age: 83 Year
  Sex: Male

DRUGS (1)
  1. XELODA [Suspect]
     Indication: BILIARY CANCER METASTATIC
     Dosage: TAKEN IN MORNING AND EVENING FOR 2 WEEKS FOLLOWED BY A 7-DAY REST PERIOD.
     Route: 048
     Dates: start: 20080310, end: 20080413

REACTIONS (5)
  - INCOHERENT [None]
  - MYALGIA [None]
  - OEDEMA PERIPHERAL [None]
  - PRODUCTIVE COUGH [None]
  - PULMONARY OEDEMA [None]
